FAERS Safety Report 21981092 (Version 2)
Quarter: 2023Q1

REPORT INFORMATION
  Report Type: Report from Study
  Country: US (occurrence: US)
  Receive Date: 20230211
  Receipt Date: 20230214
  Transmission Date: 20230418
  Serious: Yes (Other)
  Sender: FDA-Public Use
  Company Number: US-ABBVIE-4293186

PATIENT
  Age: 66 Year
  Sex: Female

DRUGS (2)
  1. RINVOQ [Suspect]
     Active Substance: UPADACITINIB
     Indication: Rheumatoid arthritis
     Dosage: ALLERGIC REACTION TO FOOD WAS RECOVERED IN JAN 2023
     Route: 048
     Dates: start: 20221028, end: 20230201
  2. RINVOQ [Suspect]
     Active Substance: UPADACITINIB
     Indication: Rheumatoid arthritis
     Dosage: DRUG START DATE: FEB 2023
     Route: 048
     Dates: end: 20230207

REACTIONS (6)
  - Anaphylactic shock [Unknown]
  - Abdominal pain upper [Unknown]
  - Food allergy [Recovered/Resolved]
  - COVID-19 [Recovered/Resolved]
  - Food allergy [Unknown]
  - Allergy to animal [Unknown]

NARRATIVE: CASE EVENT DATE: 20221228
